FAERS Safety Report 4652379-3 (Version None)
Quarter: 2005Q2

REPORT INFORMATION
  Report Type: 
  Country: None (occurrence: None)
  Receive Date: 20050504
  Receipt Date: 20050117
  Transmission Date: 20051028
  Serious: Yes (Hospitalization, Disabling)
  Sender: FDA-Public Use
  Company Number: US-MERCK-0501USA02661

PATIENT
  Age: 54 Year
  Sex: Male
  Weight: 120 kg

DRUGS (4)
  1. VIOXX [Suspect]
     Indication: ARTHRITIS
     Route: 048
     Dates: start: 20021217, end: 20040910
  2. VIOXX [Suspect]
     Route: 048
     Dates: start: 20031015
  3. NORVASC [Concomitant]
     Route: 065
     Dates: start: 20030107
  4. ATENOLOL [Concomitant]
     Indication: HYPERTENSION
     Route: 065
     Dates: start: 20030107, end: 20040227

REACTIONS (5)
  - CARDIAC DISORDER [None]
  - DIABETES MELLITUS NON-INSULIN-DEPENDENT [None]
  - HYPERCHOLESTEROLAEMIA [None]
  - MYOCARDIAL INFARCTION [None]
  - PALPITATIONS [None]
